FAERS Safety Report 18559471 (Version 2)
Quarter: 2020Q4

REPORT INFORMATION
  Report Type: Spontaneous
  Country: US (occurrence: US)
  Receive Date: 20201130
  Receipt Date: 20201203
  Transmission Date: 20210114
  Serious: No
  Sender: FDA-Public Use
  Company Number: US-PFIZER INC-2020467311

PATIENT
  Sex: Female

DRUGS (2)
  1. XELJANZ [Suspect]
     Active Substance: TOFACITINIB CITRATE
     Dosage: UNK
  2. VIMOVO [Concomitant]
     Active Substance: ESOMEPRAZOLE MAGNESIUM\NAPROXEN
     Indication: PROPHYLAXIS
     Dosage: UNK, ALTERNATE DAY (EVERY OTHER DAY)

REACTIONS (2)
  - Spinal pain [Recovered/Resolved]
  - Herpes zoster [Not Recovered/Not Resolved]
